FAERS Safety Report 8355835-X (Version None)
Quarter: 2012Q2

REPORT INFORMATION
  Report Type: 
  Country: None (occurrence: None)
  Receive Date: 20120510
  Receipt Date: 20120427
  Transmission Date: 20120825
  Serious: Yes (Other)
  Sender: FDA-Public Use
  Company Number: AUR-APL-2012-02088

PATIENT
  Age: 23 Year
  Sex: Female

DRUGS (1)
  1. MINOCYCLINE HCL [Suspect]
     Indication: ACNE

REACTIONS (9)
  - PHONOPHOBIA [None]
  - VOMITING [None]
  - PAPILLOEDEMA [None]
  - TINNITUS [None]
  - INTRACRANIAL PRESSURE INCREASED [None]
  - HEADACHE [None]
  - BLINDNESS [None]
  - DIPLOPIA [None]
  - SCOTOMA [None]
